FAERS Safety Report 14025761 (Version 1)
Quarter: 2017Q3

REPORT INFORMATION
  Report Type: Report from Study
  Country: CA (occurrence: CA)
  Receive Date: 20170929
  Receipt Date: 20170929
  Transmission Date: 20171128
  Serious: Yes (Death, Other)
  Sender: FDA-Public Use
  Company Number: CA-AMGEN-CANSL2017146134

PATIENT
  Sex: Female

DRUGS (1)
  1. PROLIA [Suspect]
     Active Substance: DENOSUMAB
     Indication: PRODUCT USED FOR UNKNOWN INDICATION
     Dosage: UNK
     Route: 065

REACTIONS (7)
  - Death [Fatal]
  - Disorientation [Unknown]
  - Gallbladder operation [Unknown]
  - Pain [Unknown]
  - Confusional state [Unknown]
  - Neoplasm malignant [Unknown]
  - Mental impairment [Unknown]

NARRATIVE: CASE EVENT DATE: 20170301
